FAERS Safety Report 18005345 (Version 1)
Quarter: 2020Q3

REPORT INFORMATION
  Report Type: Other
  Country: AU (occurrence: AU)
  Receive Date: 20200710
  Receipt Date: 20200710
  Transmission Date: 20201103
  Serious: Yes (Other)
  Sender: FDA-Public Use
  Company Number: AU-ASTELLAS-2020US022279

PATIENT
  Age: 29 Year
  Sex: Female

DRUGS (2)
  1. DITROPAN [Concomitant]
     Active Substance: OXYBUTYNIN CHLORIDE
     Indication: BLADDER DISORDER
     Dosage: UNK UNK, UNKNOWN FREQ.
     Route: 065
  2. VESICARE [Suspect]
     Active Substance: SOLIFENACIN SUCCINATE
     Indication: PRODUCT USED FOR UNKNOWN INDICATION
     Dosage: UNK UNK, UNKNOWN FREQ.
     Route: 065

REACTIONS (5)
  - Hallucination [Unknown]
  - Eye pain [Unknown]
  - Migraine [Unknown]
  - Vertigo [Recovering/Resolving]
  - Torticollis [Not Recovered/Not Resolved]

NARRATIVE: CASE EVENT DATE: 20171010
